FAERS Safety Report 18832835 (Version 1)
Quarter: 2021Q1

REPORT INFORMATION
  Report Type: Report from Study
  Country: None (occurrence: US)
  Receive Date: 20210201
  Receipt Date: 20210201
  Transmission Date: 20210419
  Serious: Yes (Other)
  Sender: FDA-Public Use
  Company Number: US-ABBVIE-21K-163-3748645-00

PATIENT
  Age: 38 Year
  Sex: Female

DRUGS (2)
  1. HUMIRA [Suspect]
     Active Substance: ADALIMUMAB
     Indication: PSORIATIC ARTHROPATHY
     Route: 058
     Dates: start: 20210114
  2. PREDNISONE. [Suspect]
     Active Substance: PREDNISONE
     Indication: PRODUCT USED FOR UNKNOWN INDICATION
     Route: 065

REACTIONS (15)
  - Systemic lupus erythematosus [Unknown]
  - Genital pain [Unknown]
  - Tachycardia [Recovered/Resolved]
  - Injection site swelling [Not Recovered/Not Resolved]
  - Dizziness [Recovered/Resolved]
  - Paraesthesia [Recovering/Resolving]
  - Erythema [Unknown]
  - Urticaria [Unknown]
  - Headache [Not Recovered/Not Resolved]
  - Fear of disease [Unknown]
  - Insomnia [Recovered/Resolved]
  - Eye pain [Recovering/Resolving]
  - Swelling [Unknown]
  - Injection site bruising [Not Recovered/Not Resolved]
  - Injection site necrosis [Not Recovered/Not Resolved]

NARRATIVE: CASE EVENT DATE: 202101
